FAERS Safety Report 10026026 (Version 1)
Quarter: 2014Q1

REPORT INFORMATION
  Report Type: Spontaneous
  Country: NL (occurrence: NL)
  Receive Date: 20140320
  Receipt Date: 20140320
  Transmission Date: 20141002
  Serious: Yes (Hospitalization)
  Sender: FDA-Public Use
  Company Number: NL-009507513-1403NLD009790

PATIENT
  Age: 88 Year
  Sex: Male

DRUGS (3)
  1. LOSARTAN POTASSIUM [Suspect]
     Indication: HYPERTENSION
     Dosage: 1 DF, QD
     Route: 048
     Dates: start: 20140120, end: 20140202
  2. LERCANIDIPINE [Concomitant]
     Dosage: 10 MG, BID
     Route: 048
  3. METOPROLOL [Concomitant]
     Dosage: 50 MG, QD
     Route: 048

REACTIONS (1)
  - Pancreatitis [Recovering/Resolving]
